FAERS Safety Report 5170215-6 (Version None)
Quarter: 2006Q4

REPORT INFORMATION
  Report Type: 
  Country: None (occurrence: None)
  Receive Date: 20061212
  Receipt Date: 20061129
  Transmission Date: 20070319
  Serious: Yes (Hospitalization)
  Sender: FDA-Public Use
  Company Number: DE-ELI_LILLY_AND_COMPANY-DE200612000291

PATIENT
  Age: 74 Year
  Sex: Female

DRUGS (5)
  1. CYMBALTA [Suspect]
     Dosage: 60 MG, DAILY (1/D)
     Route: 048
     Dates: start: 20061005
  2. METOPROLOL SUCCINATE [Concomitant]
     Route: 048
  3. TRIAMTERENE AND HYDROCHLOROTHIAZIDE [Concomitant]
  4. ERGENYL CHRONO [Concomitant]
     Dosage: 800 MG, UNK
  5. TAVOR [Concomitant]
     Dosage: 2 MG, UNK

REACTIONS (4)
  - DIZZINESS [None]
  - FALL [None]
  - MULTIPLE FRACTURES [None]
  - SYNCOPE [None]
